FAERS Safety Report 4871180-9 (Version None)
Quarter: 2006Q1

REPORT INFORMATION
  Report Type: 
  Country: None (occurrence: None)
  Receive Date: 20060103
  Receipt Date: 20051122
  Transmission Date: 20060701
  Serious: Yes (Hospitalization)
  Sender: FDA-Public Use
  Company Number: FR-NOVOPROD-248796

PATIENT
  Age: 42 Year
  Sex: Male
  Weight: 68 kg

DRUGS (6)
  1. KASKADIL [Concomitant]
     Dosage: 180 ML, UNK
  2. FRESH FROZEN PLASMA [Concomitant]
     Dosage: 30 IU, UNK
  3. RED BLOOD CELLS [Concomitant]
     Dosage: 24 IU, UNK
  4. PLATELETS [Concomitant]
     Dosage: 23 IU, UNK
  5. NOVOSEVEN [Suspect]
     Indication: OPERATIVE HAEMORRHAGE
     Dosage: 4.8 MG, UNK
     Route: 042
     Dates: start: 20050325, end: 20050325
  6. NOVOSEVEN [Suspect]
     Dosage: 4.8 MG, UNK
     Route: 042
     Dates: start: 20050325, end: 20050325

REACTIONS (1)
  - ARTERIAL THROMBOSIS LIMB [None]
